FAERS Safety Report 5082493-2 (Version None)
Quarter: 2006Q3

REPORT INFORMATION
  Report Type: 
  Country: None (occurrence: None)
  Receive Date: 20060814
  Receipt Date: 20060802
  Transmission Date: 20061208
  Serious: Yes (Hospitalization, Other)
  Sender: FDA-Public Use
  Company Number: 2006095498

PATIENT
  Age: 78 Year
  Sex: Female
  Weight: 50.8029 kg

DRUGS (3)
  1. LIPITOR [Suspect]
     Indication: BLOOD CHOLESTEROL
     Dosage: 10 MG (10 MG, DAILY)
     Dates: start: 20050601, end: 20060601
  2. PREMARIN [Concomitant]
  3. SYNTHROID [Concomitant]

REACTIONS (1)
  - URTICARIA [None]
